FAERS Safety Report 21266950 (Version 5)
Quarter: 2023Q2

REPORT INFORMATION
  Report Type: Report from Study
  Country: US (occurrence: US)
  Receive Date: 20220829
  Receipt Date: 20230513
  Transmission Date: 20230721
  Serious: Yes (Other)
  Sender: FDA-Public Use
  Company Number: US-NOVARTISTESTPH-NVSC2022US194279

PATIENT
  Age: 58 Year
  Sex: Female

DRUGS (1)
  1. COSENTYX [Suspect]
     Active Substance: SECUKINUMAB
     Indication: Psoriatic arthropathy
     Dosage: 300 MG
     Route: 065
     Dates: start: 20211203

REACTIONS (6)
  - Psoriatic arthropathy [Unknown]
  - Skin lesion [Unknown]
  - Respiratory tract infection [Unknown]
  - Pyrexia [Unknown]
  - Sinusitis [Unknown]
  - Viral infection [Unknown]

NARRATIVE: CASE EVENT DATE: 20220820
